FAERS Safety Report 7970514 (Version 2)
Quarter: 2014Q1

REPORT INFORMATION
  Report Type: Spontaneous
  Country: US (occurrence: US)
  Receive Date: 20110602
  Receipt Date: 20140114
  Transmission Date: 20141002
  Serious: Yes (Other)
  Sender: FDA-Public Use
  Company Number: US-BAYER-2011-047110

PATIENT
  Age: 46 Year
  Sex: Female

DRUGS (6)
  1. YAZ [Suspect]
     Indication: PRODUCT USED FOR UNKNOWN INDICATION
     Dosage: UNK
     Dates: start: 201002, end: 201004
  2. YASMIN [Suspect]
     Indication: PRODUCT USED FOR UNKNOWN INDICATION
     Dosage: UNK
     Dates: start: 201002, end: 201004
  3. OCELLA [Suspect]
     Indication: PRODUCT USED FOR UNKNOWN INDICATION
     Dosage: UNK
     Dates: start: 201002, end: 201004
  4. ZOLPIDEM [Concomitant]
     Dosage: 10 MG, UNK
  5. NEXIUM [Concomitant]
     Dosage: 40 MG, UNK
  6. FLUCONAZOLE [Concomitant]
     Dosage: 150 MG, UNK

REACTIONS (8)
  - Cholelithiasis [Unknown]
  - Cholecystitis chronic [None]
  - Injury [Unknown]
  - Fear [Unknown]
  - Pain [Unknown]
  - Emotional distress [Unknown]
  - Anxiety [Unknown]
  - Psychological trauma [Unknown]
